FAERS Safety Report 5258544-9 (Version None)
Quarter: 2007Q1

REPORT INFORMATION
  Report Type: 
  Country: None (occurrence: None)
  Receive Date: 20070308
  Receipt Date: 20070307
  Transmission Date: 20070707
  Serious: Yes (Death)
  Sender: FDA-Public Use
  Company Number: DE-BRISTOL-MYERS SQUIBB COMPANY-13667472

PATIENT
  Age: 52 Year
  Sex: Male

DRUGS (3)
  1. ABILIFY [Suspect]
     Indication: MAJOR DEPRESSION
     Dosage: 5 MG FROM 14-NOV-2006 TO 20-NOV-2006
     Dates: start: 20061121, end: 20061125
  2. MIRTAZAPINE [Suspect]
     Indication: MAJOR DEPRESSION
     Dates: start: 20060918
  3. CAFFEINE [Concomitant]
     Indication: MAJOR DEPRESSION
     Dates: start: 20061121, end: 20061125

REACTIONS (5)
  - ACUTE MYOCARDIAL INFARCTION [None]
  - BUNDLE BRANCH BLOCK RIGHT [None]
  - CHEST PAIN [None]
  - MALAISE [None]
  - SINUS TACHYCARDIA [None]
